FAERS Safety Report 8792419 (Version 1)
Quarter: 2012Q4

REPORT INFORMATION
  Report Type: 
  Country: VE (occurrence: VE)
  Receive Date: 20120918
  Receipt Date: 20120918
  Transmission Date: 20130627
  Serious: Yes (Hospitalization)
  Sender: FDA-Public Use
  Company Number: PHHY2012VE080259

PATIENT
  Age: 62 Year
  Sex: Female

DRUGS (6)
  1. ACLASTA [Suspect]
     Indication: OSTEOPOROSIS
     Dosage: 5 mg per annual
     Route: 042
     Dates: start: 201205
  2. EXFORGE [Suspect]
     Indication: HYPERTENSION
     Dosage: 1 DF, QD
     Dates: start: 201108
  3. CALCIUM [Concomitant]
     Indication: OSTEOPOROSIS
     Dosage: 1 DF, QD
     Route: 048
     Dates: start: 201204
  4. OMEGA 3 [Concomitant]
     Dosage: 1 DF, QD
     Route: 048
     Dates: start: 201204
  5. ZIAC [Concomitant]
     Indication: HYPERTENSION
     Dosage: 1 DF, QD
     Route: 048
     Dates: start: 201108
  6. CORASPIN [Concomitant]
     Indication: ANTIPLATELET THERAPY
     Dosage: 1 DF, QD
     Route: 048

REACTIONS (1)
  - Procedural pain [Recovered/Resolved]
